FAERS Safety Report 7476688-8 (Version None)
Quarter: 2011Q2

REPORT INFORMATION
  Report Type: 
  Country: None (occurrence: None)
  Receive Date: 20110512
  Receipt Date: 20110503
  Transmission Date: 20111010
  Serious: Yes (Hospitalization)
  Sender: FDA-Public Use
  Company Number: FR-ASTRAZENECA-2011SE17998

PATIENT
  Age: 24821 Day
  Sex: Male

DRUGS (3)
  1. CELOCURINE [Suspect]
     Route: 042
     Dates: start: 20110207, end: 20110207
  2. DIPRIVAN [Suspect]
     Route: 042
     Dates: start: 20110207, end: 20110207
  3. SUFENTANIL CITRATE [Suspect]
     Route: 042
     Dates: start: 20110207, end: 20110207

REACTIONS (4)
  - HYPOTENSION [None]
  - BRONCHOSPASM [None]
  - RASH [None]
  - ANAPHYLACTIC SHOCK [None]
